FAERS Safety Report 22146749 (Version 1)
Quarter: 2023Q1

REPORT INFORMATION
  Report Type: Spontaneous
  Country: JP (occurrence: JP)
  Receive Date: 20230328
  Receipt Date: 20230328
  Transmission Date: 20230417
  Serious: Yes (Other)
  Sender: FDA-Public Use
  Company Number: JP-PFIZER INC-202300129890

PATIENT
  Age: 7 Decade
  Sex: Female

DRUGS (2)
  1. AZITHROMYCIN DIHYDRATE [Suspect]
     Active Substance: AZITHROMYCIN DIHYDRATE
     Indication: Tuberculosis
     Dosage: UNK
  2. AZITHROMYCIN DIHYDRATE [Suspect]
     Active Substance: AZITHROMYCIN DIHYDRATE
     Indication: Lower respiratory tract infection bacterial

REACTIONS (6)
  - White blood cell count decreased [Unknown]
  - Granulocyte count decreased [Unknown]
  - Platelet count decreased [Unknown]
  - Myalgia [Unknown]
  - Malaise [Unknown]
  - Off label use [Unknown]
